FAERS Safety Report 10371231 (Version 2)
Quarter: 2014Q3

REPORT INFORMATION
  Report Type: Spontaneous
  Country: US (occurrence: US)
  Receive Date: 20140808
  Receipt Date: 20140829
  Transmission Date: 20150326
  Serious: No
  Sender: FDA-Public Use
  Company Number: US-PFIZER INC-2014219370

PATIENT
  Age: 64 Year
  Sex: Female
  Weight: 77.1 kg

DRUGS (2)
  1. LISINOPRIL AND HYDROCHLOROTHIAZIDE [Concomitant]
     Active Substance: HYDROCHLOROTHIAZIDE\LISINOPRIL
     Indication: HYPERTENSION
     Dosage: (12.5MG/20MG), DAILY
  2. AROMASIN [Suspect]
     Active Substance: EXEMESTANE
     Indication: BREAST CANCER
     Dosage: 25 MG, 1X/DAY
     Dates: start: 201406

REACTIONS (2)
  - Hot flush [Unknown]
  - Sleep disorder [Unknown]

NARRATIVE: CASE EVENT DATE: 2014
